FAERS Safety Report 26183303 (Version 1)
Quarter: 2025Q4

REPORT INFORMATION
  Report Type: Spontaneous
  Country: US (occurrence: US)
  Receive Date: 20251221
  Receipt Date: 20251221
  Transmission Date: 20260118
  Serious: Yes (Hospitalization, Other)
  Sender: AMGEN
  Company Number: US-AMGEN-USASP2025249767

PATIENT
  Age: 57 Year
  Sex: Male

DRUGS (3)
  1. PREDNISONE [Suspect]
     Active Substance: PREDNISONE
     Indication: Systemic lupus erythematosus
     Dosage: 20 MILLIGRAM
     Route: 065
  2. CORTICOSTEROID NOS [Concomitant]
     Active Substance: CORTICOSTEROID NOS
  3. RIFAMPIN [Concomitant]
     Active Substance: RIFAMPIN

REACTIONS (3)
  - Lupus nephritis [Unknown]
  - Tuberculosis [Unknown]
  - Arrhythmia [Unknown]
